FAERS Safety Report 6336863-2 (Version None)
Quarter: 2009Q3

REPORT INFORMATION
  Report Type: 
  Country: None (occurrence: None)
  Receive Date: 20090901
  Receipt Date: 20090824
  Transmission Date: 20100115
  Serious: Yes (Other)
  Sender: FDA-Public Use
  Company Number: US-JNJCH-2009017458

PATIENT
  Sex: Male
  Weight: 74.8 kg

DRUGS (1)
  1. LISTERINE WHITENING PRE-BRUSH RINSE [Suspect]
     Indication: DENTAL DISORDER PROPHYLAXIS
     Dosage: TEXT:ONCE A DAY FOR 3 DAYS AS DIRECTED
     Route: 048
     Dates: start: 20090617, end: 20090619

REACTIONS (4)
  - APHTHOUS STOMATITIS [None]
  - INFECTION [None]
  - SKIN IRRITATION [None]
  - SWELLING FACE [None]
